FAERS Safety Report 25407536 (Version 1)
Quarter: 2025Q2

REPORT INFORMATION
  Report Type: Spontaneous
  Country: US (occurrence: US)
  Receive Date: 20250606
  Receipt Date: 20250606
  Transmission Date: 20250717
  Serious: No
  Sender: BRISTOL-MYERS SQUIBB COMPANY
  Company Number: US-BRISTOL-MYERS SQUIBB COMPANY-2025-080926

PATIENT
  Age: 39 Year
  Sex: Male
  Weight: 89.36 kg

DRUGS (4)
  1. LENALIDOMIDE [Suspect]
     Active Substance: LENALIDOMIDE
     Indication: Neoplasm malignant
     Dosage: ONCE DAILY FOR 21 DAYS.
     Route: 048
     Dates: start: 20250508
  2. LENALIDOMIDE [Suspect]
     Active Substance: LENALIDOMIDE
     Dosage: 10MG DAILY 21 DAYS ON, THEN 7 DAYS OFF
  3. ACETAMINOPHEN [Concomitant]
     Active Substance: ACETAMINOPHEN
     Indication: Product used for unknown indication
  4. ENSURE [CARBOHYDRATES NOS;FATS NOS;MINERALS NOS;PROTEINS NOS;VITAMINS [Concomitant]
     Indication: Product used for unknown indication

REACTIONS (1)
  - Laboratory test abnormal [Unknown]
